FAERS Safety Report 5130119-1 (Version None)
Quarter: 2006Q4

REPORT INFORMATION
  Report Type: 
  Country: None (occurrence: None)
  Receive Date: 20061013
  Receipt Date: 20060929
  Transmission Date: 20070319
  Serious: Yes (Death, Other)
  Sender: FDA-Public Use
  Company Number: JP200610000580

PATIENT
  Age: 53 Year
  Sex: Male

DRUGS (4)
  1. GEMZAR [Suspect]
     Indication: PROSTATE CANCER STAGE IV
     Dosage: 1000 MG/M2, INTRAVENOUS ; INTRAVENOUS
     Route: 042
     Dates: start: 20020701, end: 20020901
  2. GEMZAR [Suspect]
     Indication: PROSTATE CANCER STAGE IV
     Dosage: 1000 MG/M2, INTRAVENOUS ; INTRAVENOUS
     Route: 042
     Dates: start: 20030101
  3. DOCETAXEL [Concomitant]
  4. CARBOPLATIN [Concomitant]

REACTIONS (4)
  - BONE LESION [None]
  - MALIGNANT NEOPLASM PROGRESSION [None]
  - NEUTROPENIA [None]
  - THROMBOCYTOPENIA [None]
